FAERS Safety Report 9169360 (Version 1)
Quarter: 2013Q1

REPORT INFORMATION
  Report Type: Spontaneous
  Country: FR (occurrence: FR)
  Receive Date: 20130318
  Receipt Date: 20130318
  Transmission Date: 20140127
  Serious: Yes (Death, Hospitalization)
  Sender: FDA-Public Use
  Company Number: FR-PFIZER INC-2013059616

PATIENT
  Age: 75 Year
  Sex: Female

DRUGS (3)
  1. FLUOROURACILE PFIZER [Suspect]
     Dosage: 600 MG, WITHIN 10 MINUTES
     Route: 034
     Dates: start: 20121227, end: 20121227
  2. FLUOROURACILE PFIZER [Suspect]
     Dosage: 3500 MG, WITHIN REPORTED 46 HOURS
     Route: 034
     Dates: start: 20121227
  3. OXALIPLATINE [Suspect]
     Dosage: 125 MG, WITHIN 2 HOURS
     Route: 034
     Dates: start: 20121227, end: 20121227

REACTIONS (7)
  - Bone marrow failure [Fatal]
  - Pleurisy [Recovered/Resolved with Sequelae]
  - Renal failure [Recovered/Resolved with Sequelae]
  - Multi-organ failure [None]
  - Septic shock [None]
  - Dialysis [None]
  - Chest pain [None]
